FAERS Safety Report 8600788-X (Version None)
Quarter: 2012Q3

REPORT INFORMATION
  Report Type: 
  Country: None (occurrence: None)
  Receive Date: 20120817
  Receipt Date: 20120808
  Transmission Date: 20120928
  Serious: Yes (Hospitalization)
  Sender: FDA-Public Use
  Company Number: GB-ABBOTT-12P-167-0934904-00

PATIENT
  Sex: Female

DRUGS (6)
  1. LEUPROLIDE ACETATE [Suspect]
     Indication: PELVIC PAIN
  2. ACETAZOLAMIDE [Concomitant]
     Indication: PRODUCT USED FOR UNKNOWN INDICATION
     Dates: start: 20080101
  3. CARBAMAZEPINE [Concomitant]
     Indication: PRODUCT USED FOR UNKNOWN INDICATION
     Dates: start: 20080101
  4. CLOBAZAM [Concomitant]
     Indication: EPILEPSY
     Dates: start: 20080101
  5. LEUPROLIDE ACETATE [Suspect]
     Indication: ENDOMETRIOSIS
     Route: 065
     Dates: start: 20120101
  6. VENLAFAXINE [Concomitant]
     Indication: DEPRESSION
     Route: 048
     Dates: start: 20080101

REACTIONS (2)
  - FOCAL NODULAR HYPERPLASIA [None]
  - CHOLANGITIS [None]
